FAERS Safety Report 7867566-0 (Version None)
Quarter: 2011Q4

REPORT INFORMATION
  Report Type: 
  Country: None (occurrence: None)
  Receive Date: 20111028
  Receipt Date: 20111021
  Transmission Date: 20120403
  Serious: Yes (Other)
  Sender: FDA-Public Use
  Company Number: PHHY2011US59628

PATIENT
  Sex: Female

DRUGS (8)
  1. HYDROCODONE BITARTRATE [Concomitant]
  2. WELLBUTRIN [Concomitant]
  3. EFFEXOR [Concomitant]
  4. FLECTOR [Concomitant]
  5. RECLAST [Suspect]
     Indication: OSTEOPOROSIS
     Dosage: UNK UKN, UNK
     Route: 042
  6. DURAGESIC-100 [Concomitant]
  7. VOLTAREN [Concomitant]
  8. SOMA [Concomitant]

REACTIONS (6)
  - BACK DISORDER [None]
  - MUSCLE SPASMS [None]
  - TOOTH LOSS [None]
  - MUSCULOSKELETAL CHEST PAIN [None]
  - PAIN IN EXTREMITY [None]
  - OSTEONECROSIS OF JAW [None]
